FAERS Safety Report 4356001-5 (Version None)
Quarter: 2004Q2

REPORT INFORMATION
  Report Type: 
  Country: None (occurrence: None)
  Receive Date: 20040507
  Receipt Date: 20040507
  Transmission Date: 20050107
  Serious: Yes (Life-Threatening, Hospitalization)
  Sender: FDA-Public Use
  Company Number: None

PATIENT
  Age: 55 Year
  Sex: Male
  Weight: 100.2 kg

DRUGS (1)
  1. LISINOPRIL [Suspect]

REACTIONS (3)
  - ANGIONEUROTIC OEDEMA [None]
  - CONFUSIONAL STATE [None]
  - SWELLING FACE [None]
